FAERS Safety Report 9799643 (Version 2)
Quarter: 2014Q1

REPORT INFORMATION
  Report Type: Spontaneous
  Country: IT (occurrence: IT)
  Receive Date: 20140106
  Receipt Date: 20140106
  Transmission Date: 20141002
  Serious: Yes (Other)
  Sender: FDA-Public Use
  Company Number: IT-PFIZER INC-2013354636

PATIENT
  Age: 28 Year
  Sex: Female

DRUGS (1)
  1. XANAX [Suspect]
     Indication: ANXIETY
     Dosage: 40 GTT, SINGLE DOSE
     Route: 048
     Dates: start: 20131028, end: 20131028

REACTIONS (3)
  - Drug abuse [Recovered/Resolved]
  - Anxiety [Recovered/Resolved]
  - Self injurious behaviour [Unknown]
